FAERS Safety Report 5093899-X (Version None)
Quarter: 2006Q3

REPORT INFORMATION
  Report Type: 
  Country: None (occurrence: None)
  Receive Date: 20060728
  Receipt Date: 20060626
  Transmission Date: 20061208
  Serious: No
  Sender: FDA-Public Use
  Company Number: 254428

PATIENT
  Age: 77 Year
  Weight: 53.5 kg

DRUGS (6)
  1. LEVEMIR [Suspect]
     Indication: DIABETES MELLITUS INSULIN-DEPENDENT
     Dosage: 34 IU, QD, SUBCUTANEOUS
     Route: 058
     Dates: start: 20060101
  2. THYROID TAB [Concomitant]
  3. ASACOL [Concomitant]
  4. PREVACID [Concomitant]
  5. ASPIRIN [Concomitant]
  6. CELEBREX [Concomitant]

REACTIONS (1)
  - BLOOD GLUCOSE INCREASED [None]
